FAERS Safety Report 13075310 (Version 1)
Quarter: 2016Q4

REPORT INFORMATION
  Report Type: Report from Study
  Country: US (occurrence: US)
  Receive Date: 20161230
  Receipt Date: 20161230
  Transmission Date: 20170207
  Serious: Yes (Hospitalization, Other)
  Sender: FDA-Public Use
  Company Number: US-BAYER-2015-493440

PATIENT
  Age: 81 Year
  Sex: Male
  Weight: 48.53 kg

DRUGS (7)
  1. ADEMPAS [Suspect]
     Active Substance: RIOCIGUAT
     Indication: PULMONARY HYPERTENSION
     Dosage: 0.5 MG, TID
     Route: 048
  2. WARFARIN [Concomitant]
     Active Substance: WARFARIN
     Dosage: UNK
  3. APIXABAN [Concomitant]
     Active Substance: APIXABAN
     Dosage: UNK
  4. ADEMPAS [Suspect]
     Active Substance: RIOCIGUAT
     Indication: PULMONARY HYPERTENSION
     Dosage: UNK
     Route: 048
     Dates: start: 20151202
  5. ADEMPAS [Suspect]
     Active Substance: RIOCIGUAT
     Indication: PULMONARY HYPERTENSION
     Dosage: 0.5 MG, TID
     Route: 048
  6. ADEMPAS [Suspect]
     Active Substance: RIOCIGUAT
     Indication: PULMONARY HYPERTENSION
     Dosage: 0.5 MG, TID
     Route: 048
  7. TRACLEER [Concomitant]
     Active Substance: BOSENTAN
     Dosage: UNK

REACTIONS (31)
  - Rales [Not Recovered/Not Resolved]
  - Dysphagia [None]
  - Dyspnoea [Unknown]
  - Joint swelling [Unknown]
  - Dizziness [Unknown]
  - Headache [Unknown]
  - Cough [Unknown]
  - Oedema peripheral [Unknown]
  - Pneumonia [Unknown]
  - Abdominal distension [Recovered/Resolved]
  - Ascites [Unknown]
  - Epistaxis [Unknown]
  - Insomnia [Unknown]
  - Constipation [None]
  - Oedema peripheral [None]
  - Hypophagia [None]
  - Diarrhoea haemorrhagic [Unknown]
  - Dyspnoea [Unknown]
  - Fatigue [Unknown]
  - Dizziness [Recovered/Resolved]
  - Dizziness [Unknown]
  - Haemoptysis [Unknown]
  - Pyrexia [None]
  - Chest pain [Unknown]
  - Weight increased [None]
  - Oedema [Unknown]
  - Dyspnoea [None]
  - Abdominal distension [None]
  - Fatigue [Unknown]
  - Hepatic cirrhosis [None]
  - Breath sounds abnormal [None]

NARRATIVE: CASE EVENT DATE: 20160830
